FAERS Safety Report 15891214 (Version 1)
Quarter: 2019Q1

REPORT INFORMATION
  Report Type: Spontaneous
  Country: US (occurrence: US)
  Receive Date: 20190130
  Receipt Date: 20190130
  Transmission Date: 20190417
  Serious: No
  Sender: FDA-Public Use
  Company Number: US-ALLERGAN-1807215US

PATIENT
  Age: 36 Year
  Sex: Female
  Weight: 77.98 kg

DRUGS (2)
  1. HYDROXYZINE [Concomitant]
     Active Substance: HYDROXYZINE HYDROCHLORIDE
     Indication: PAIN
     Dosage: 25 MG, UNK
     Route: 065
  2. VIIBRYD [Suspect]
     Active Substance: VILAZODONE HYDROCHLORIDE
     Indication: PERINATAL DEPRESSION
     Dosage: 10 MG, QD
     Route: 048
     Dates: start: 201801

REACTIONS (1)
  - Off label use [Unknown]

NARRATIVE: CASE EVENT DATE: 201801
